FAERS Safety Report 6749069-X (Version None)
Quarter: 2010Q2

REPORT INFORMATION
  Report Type: 
  Country: None (occurrence: None)
  Receive Date: 20100601
  Receipt Date: 20100527
  Transmission Date: 20101027
  Serious: Yes (Hospitalization)
  Sender: FDA-Public Use
  Company Number: CA-BAYER-201023952NA

PATIENT
  Age: 32 Year
  Sex: Male

DRUGS (1)
  1. AVELOX [Suspect]
     Indication: INFECTION
     Dates: start: 20100131, end: 20100209

REACTIONS (2)
  - PAIN IN EXTREMITY [None]
  - TENDON RUPTURE [None]
